FAERS Safety Report 5509683-6 (Version None)
Quarter: 2007Q4

REPORT INFORMATION
  Report Type: 
  Country: None (occurrence: None)
  Receive Date: 20071107
  Receipt Date: 20071107
  Transmission Date: 20080405
  Serious: Yes (Hospitalization)
  Sender: FDA-Public Use
  Company Number: None

PATIENT
  Age: 75 Year
  Sex: Male
  Weight: 84.8226 kg

DRUGS (18)
  1. IOPROMIDE (300 MILLIGRAMS IODINE/MILLILITER) [Suspect]
     Indication: COMPUTERISED TOMOGRAM
     Dosage: 200 ML ONCE IV
     Route: 042
     Dates: start: 20070314
  2. DARBOPOETIN ALFA [Concomitant]
  3. DIPHENHYDRAMINE HCL [Concomitant]
  4. GEMCITABINE [Concomitant]
  5. DEXAMETHASONE [Concomitant]
  6. ERLOTINIB [Concomitant]
  7. HYDROMORPHONE HCL [Concomitant]
  8. LOPERAMIDE HCL [Concomitant]
  9. METOCLOPRAMIDE [Concomitant]
  10. METOPROLOL TARTRATE [Concomitant]
  11. MIRTAZAPINE [Concomitant]
  12. OMEPRAZOLE [Concomitant]
  13. ONDANSETRON [Concomitant]
  14. OXYCODONE AND ACETAMINOPHEN [Concomitant]
  15. PROCHLORPERAZINE [Concomitant]
  16. SENNOSIDES [Concomitant]
  17. TERAZOSIN HCL [Concomitant]
  18. LEVALBUTEROL HCL [Concomitant]

REACTIONS (4)
  - CONTRAST MEDIA REACTION [None]
  - DEHYDRATION [None]
  - OBSTRUCTION [None]
  - RENAL FAILURE ACUTE [None]
